FAERS Safety Report 7597861-4 (Version None)
Quarter: 2011Q3

REPORT INFORMATION
  Report Type: 
  Country: None (occurrence: None)
  Receive Date: 20110708
  Receipt Date: 20110627
  Transmission Date: 20111222
  Serious: Yes (Hospitalization, Disabling)
  Sender: FDA-Public Use
  Company Number: US-MERCK-1104USA03485

PATIENT
  Age: 67 Year
  Sex: Female

DRUGS (3)
  1. [THERAPY UNSPECIFIED] [Concomitant]
     Indication: HYPERTENSION
     Route: 065
     Dates: start: 19970101, end: 20090701
  2. FOSAMAX [Suspect]
     Route: 048
     Dates: end: 20090401
  3. FOSAMAX [Suspect]
     Route: 048
     Dates: start: 19990901, end: 20090601

REACTIONS (23)
  - HYPOVOLAEMIA [None]
  - VERTEBROBASILAR INSUFFICIENCY [None]
  - DIZZINESS [None]
  - EPISTAXIS [None]
  - SKELETAL INJURY [None]
  - CONTUSION [None]
  - DIABETES MELLITUS [None]
  - FALL [None]
  - ABDOMINAL MASS [None]
  - ABDOMINAL PAIN [None]
  - GASTROINTESTINAL HAEMORRHAGE [None]
  - CROHN'S DISEASE [None]
  - BRONCHITIS [None]
  - PAIN IN EXTREMITY [None]
  - INSOMNIA [None]
  - HORMONE LEVEL ABNORMAL [None]
  - DIARRHOEA [None]
  - REPRODUCTIVE TRACT DISORDER [None]
  - HYPOTHYROIDISM [None]
  - FEMUR FRACTURE [None]
  - CARDIAC MURMUR [None]
  - URINARY TRACT INFECTION [None]
  - PELVIC MASS [None]
